FAERS Safety Report 10396178 (Version 1)
Quarter: 2014Q1

REPORT INFORMATION
  Report Type: Spontaneous
  Country: US (occurrence: None)
  Receive Date: 20130724
  Receipt Date: 20130724
  Transmission Date: 20141002
  Serious: Yes (Other)
  Sender: FDA-Public Use
  Company Number: PHEH2011US009160

PATIENT
  Age: 45 Year
  Sex: Male
  Weight: 64 kg

DRUGS (7)
  1. GLEEVEC (IMATINIB) UNKNOWN [Suspect]
     Indication: GASTROINTESTINAL STROMAL TUMOUR
     Route: 048
     Dates: start: 201102
  2. DICYCLOMINE (DICYCLOVERINE) [Concomitant]
  3. IBUPROFEN [Concomitant]
  4. GABAPENTIN [Concomitant]
  5. PRILOSEC (OMEPRAZOLE) [Concomitant]
  6. DILAUDID (HYDROMORPHONE HYDROCHLORIDE) [Concomitant]
  7. MS CONTIN (MORPHINE SULFATE) [Concomitant]

REACTIONS (8)
  - Neoplasm progression [None]
  - Vomiting [None]
  - Abdominal pain [None]
  - Fluid retention [None]
  - Musculoskeletal stiffness [None]
  - Pain in extremity [None]
  - Pyrexia [None]
  - Malignant neoplasm progression [None]
